FAERS Safety Report 4815155-4 (Version None)
Quarter: 2005Q4

REPORT INFORMATION
  Report Type: 
  Country: None (occurrence: None)
  Receive Date: 20051027
  Receipt Date: 20051014
  Transmission Date: 20060501
  Serious: Yes (Other)
  Sender: FDA-Public Use
  Company Number: 2005142005

PATIENT
  Age: 24 Year
  Sex: Female
  Weight: 44.4525 kg

DRUGS (3)
  1. LISTERINE ANTISEPTIC MOUTHWASH (MENTHOL, METHYL SALICYLATE, EUCALYPTOL [Suspect]
     Indication: ALCOHOLISM
     Dosage: ALMOST THE ENTIRE 500ML BOTTLE, ONCE, ORAL
     Route: 048
     Dates: end: 20051014
  2. ESCITALOPRAM OXALATE [Concomitant]
  3. CLONAZEPAM [Concomitant]

REACTIONS (2)
  - FEELING ABNORMAL [None]
  - INTENTIONAL DRUG MISUSE [None]
